FAERS Safety Report 7717628-3 (Version None)
Quarter: 2011Q3

REPORT INFORMATION
  Report Type: 
  Country: None (occurrence: None)
  Receive Date: 20110830
  Receipt Date: 20110830
  Transmission Date: 20111222
  Serious: Yes (Life-Threatening, Hospitalization)
  Sender: FDA-Public Use
  Company Number: None

PATIENT
  Age: 49 Year
  Sex: Female
  Weight: 56.699 kg

DRUGS (1)
  1. TOPAMAX [Suspect]
     Indication: MIGRAINE PROPHYLAXIS
     Dosage: 1 TABLET
     Route: 048
     Dates: start: 20090101, end: 20110828

REACTIONS (4)
  - PARANOIA [None]
  - SUICIDE ATTEMPT [None]
  - HALLUCINATION [None]
  - STRESS [None]
